FAERS Safety Report 24593151 (Version 3)
Quarter: 2025Q3

REPORT INFORMATION
  Report Type: Report from Study
  Country: CA (occurrence: CA)
  Receive Date: 20241108
  Receipt Date: 20250701
  Transmission Date: 20251021
  Serious: Yes (Other)
  Sender: TAKEDA
  Company Number: CA-TAKEDA-2024TUS111615

PATIENT
  Sex: Female

DRUGS (21)
  1. VEDOLIZUMAB [Suspect]
     Active Substance: VEDOLIZUMAB
     Indication: Crohn^s disease
  2. VEDOLIZUMAB [Suspect]
     Active Substance: VEDOLIZUMAB
     Dosage: 300 MILLIGRAM, Q4WEEKS
     Dates: start: 20241004
  3. VEDOLIZUMAB [Suspect]
     Active Substance: VEDOLIZUMAB
     Dosage: 300 MILLIGRAM, Q4WEEKS
  4. PANTOPRAZOLE SODIUM [Suspect]
     Active Substance: PANTOPRAZOLE SODIUM
     Indication: Product used for unknown indication
  5. PANTOPRAZOLE [Concomitant]
     Active Substance: PANTOPRAZOLE
  6. CANDESARTAN [Concomitant]
     Active Substance: CANDESARTAN
  7. ALLOPURINOL [Concomitant]
     Active Substance: ALLOPURINOL
  8. ALLOPURINOL [Concomitant]
     Active Substance: ALLOPURINOL
  9. COLCHICINE [Concomitant]
     Active Substance: COLCHICINE
  10. CITALOPRAM [Concomitant]
     Active Substance: CITALOPRAM
  11. SPIRONOLACTONE [Concomitant]
     Active Substance: SPIRONOLACTONE
  12. ROSUVASTATIN [Concomitant]
     Active Substance: ROSUVASTATIN
  13. VITAMIN D [Concomitant]
     Active Substance: VITAMIN D NOS
  14. VITAMIN D [Concomitant]
     Active Substance: VITAMIN D NOS
  15. MAGNESIUM [Concomitant]
     Active Substance: MAGNESIUM
  16. LORAZEPAM [Concomitant]
     Active Substance: LORAZEPAM
     Dosage: UNK UNK, QD
  17. VITAMIN B12 [Concomitant]
     Active Substance: CYANOCOBALAMIN
  18. VITAMIN B12 [Concomitant]
     Active Substance: CYANOCOBALAMIN
  19. MIDODRINE [Concomitant]
     Active Substance: MIDODRINE
  20. PREDNISONE [Concomitant]
     Active Substance: PREDNISONE
  21. CELEXA [Concomitant]
     Active Substance: CITALOPRAM HYDROBROMIDE

REACTIONS (1)
  - Atrial fibrillation [Unknown]
